FAERS Safety Report 6194817-3 (Version None)
Quarter: 2009Q2

REPORT INFORMATION
  Report Type: 
  Country: None (occurrence: None)
  Receive Date: 20090519
  Receipt Date: 20090509
  Transmission Date: 20091009
  Serious: Yes (Other)
  Sender: FDA-Public Use
  Company Number: US-AMGEN-TCS346481

PATIENT
  Sex: Female

DRUGS (1)
  1. ENBREL [Suspect]
     Indication: RHEUMATOID ARTHRITIS
     Route: 058
     Dates: start: 20090201

REACTIONS (11)
  - ANXIETY [None]
  - DRY MOUTH [None]
  - DYSPHEMIA [None]
  - EYE SWELLING [None]
  - HEADACHE [None]
  - HORDEOLUM [None]
  - HYPERTENSION [None]
  - INSOMNIA [None]
  - OCULAR HYPERAEMIA [None]
  - RHEUMATOID ARTHRITIS [None]
  - TREMOR [None]
